FAERS Safety Report 9261829 (Version 1)
Quarter: 2013Q2

REPORT INFORMATION
  Report Type: Spontaneous
  Country: AE (occurrence: AE)
  Receive Date: 20130429
  Receipt Date: 20130429
  Transmission Date: 20140414
  Serious: Yes (Other)
  Sender: FDA-Public Use
  Company Number: AE-ELI_LILLY_AND_COMPANY-AE201304007316

PATIENT
  Age: 13 Year
  Sex: Female
  Weight: 59 kg

DRUGS (2)
  1. LISPRO [Suspect]
     Indication: TYPE 1 DIABETES MELLITUS
     Dosage: 30 U, UNK
     Route: 058
     Dates: start: 201110
  2. LANTUS [Concomitant]
     Indication: TYPE 1 DIABETES MELLITUS
     Dosage: 40 U, UNK

REACTIONS (1)
  - Weight increased [Not Recovered/Not Resolved]
